FAERS Safety Report 11146005 (Version 1)
Quarter: 2015Q2

REPORT INFORMATION
  Report Type: Spontaneous
  Country: BR (occurrence: BR)
  Receive Date: 20150528
  Receipt Date: 20150528
  Transmission Date: 20150821
  Serious: Yes (Other)
  Sender: FDA-Public Use
  Company Number: BR-GLAXOSMITHKLINE-BR2015GSK072716

PATIENT
  Age: 55 Year
  Sex: Female

DRUGS (6)
  1. SIBUTRAMINE [Concomitant]
     Active Substance: SIBUTRAMINE
     Indication: PRODUCT USED FOR UNKNOWN INDICATION
     Dosage: UNK
  2. OMEPRAZOLE. [Concomitant]
     Active Substance: OMEPRAZOLE
     Indication: PRODUCT USED FOR UNKNOWN INDICATION
     Dosage: UNK
  3. XENICAL [Suspect]
     Active Substance: ORLISTAT
     Indication: PRODUCT USED FOR UNKNOWN INDICATION
     Dosage: 120 MG CAPSULE, BID
     Route: 065
  4. RANITIDINE [Concomitant]
     Active Substance: RANITIDINE\RANITIDINE HYDROCHLORIDE
     Indication: PRODUCT USED FOR UNKNOWN INDICATION
     Dosage: UNK
  5. ADALAT [Concomitant]
     Active Substance: NIFEDIPINE
     Indication: PRODUCT USED FOR UNKNOWN INDICATION
     Dosage: UNK
  6. RIVOTRIL [Suspect]
     Active Substance: CLONAZEPAM
     Indication: PRODUCT USED FOR UNKNOWN INDICATION
     Dosage: 1 DF, AT NIGHT. THERAPY START DATE MORE THAN 20 YEARS AGO.
     Route: 065

REACTIONS (9)
  - Hiatus hernia [Unknown]
  - Bone disorder [Unknown]
  - Swelling [Unknown]
  - Ill-defined disorder [Unknown]
  - Hepatic steatosis [Unknown]
  - Erythema [Unknown]
  - Helicobacter test positive [Unknown]
  - Paraplegia [Unknown]
  - Pruritus [Unknown]
